FAERS Safety Report 14147025 (Version 2)
Quarter: 2018Q1

REPORT INFORMATION
  Report Type: Spontaneous
  Country: FR (occurrence: FR)
  Receive Date: 20171101
  Receipt Date: 20180116
  Transmission Date: 20180508
  Serious: Yes (Other)
  Sender: FDA-Public Use
  Company Number: FR-MERCK KGAA-2032920

PATIENT
  Age: 77 Year
  Sex: Female

DRUGS (2)
  1. NOVOTHYROX [Suspect]
     Active Substance: LEVOTHYROXINE SODIUM
     Dates: start: 20170927
  2. NOVOTHYROX [Suspect]
     Active Substance: LEVOTHYROXINE SODIUM
     Indication: HYPOTHYROIDISM
     Dates: start: 20170518

REACTIONS (17)
  - Pain in extremity [None]
  - Fatigue [None]
  - Loss of personal independence in daily activities [None]
  - Blood thyroid stimulating hormone decreased [Recovered/Resolved]
  - Eye movement disorder [Recovering/Resolving]
  - Visual impairment [None]
  - Dysphagia [Not Recovered/Not Resolved]
  - Balance disorder [None]
  - Constipation [Not Recovered/Not Resolved]
  - Somnolence [None]
  - Hot flush [Recovered/Resolved]
  - Musculoskeletal discomfort [Recovered/Resolved]
  - Hyperthyroidism [None]
  - Thyroxine increased [Recovered/Resolved]
  - Limb discomfort [Recovered/Resolved]
  - Arthralgia [None]
  - Insomnia [None]

NARRATIVE: CASE EVENT DATE: 2017
